FAERS Safety Report 13706442 (Version 2)
Quarter: 2017Q3

REPORT INFORMATION
  Report Type: Spontaneous
  Country: JP (occurrence: JP)
  Receive Date: 20170630
  Receipt Date: 20170705
  Transmission Date: 20171127
  Serious: Yes (Other)
  Sender: FDA-Public Use
  Company Number: JP-TAKEDA-2017MPI005784

PATIENT
  Age: 17 Year
  Sex: Female

DRUGS (1)
  1. VELCADE [Suspect]
     Active Substance: BORTEZOMIB
     Indication: ENCEPHALITIS AUTOIMMUNE
     Dosage: 1.3 MG/M2, 1/WEEK
     Route: 058
     Dates: start: 201705, end: 201706

REACTIONS (7)
  - Haematochezia [Recovered/Resolved]
  - Product use in unapproved indication [Unknown]
  - Cytomegalovirus infection [Not Recovered/Not Resolved]
  - Infection in an immunocompromised host [Recovered/Resolved]
  - Ileus [Recovered/Resolved]
  - Off label use [Unknown]
  - Neutropenia [Recovered/Resolved]

NARRATIVE: CASE EVENT DATE: 201705
